FAERS Safety Report 5410915-3 (Version None)
Quarter: 2007Q3

REPORT INFORMATION
  Report Type: 
  Country: None (occurrence: None)
  Receive Date: 20070810
  Receipt Date: 20070731
  Transmission Date: 20080115
  Serious: Yes (Hospitalization)
  Sender: FDA-Public Use
  Company Number: US-BAYER-200712555BWH

PATIENT
  Age: 83 Year
  Sex: Male
  Weight: 93 kg

DRUGS (15)
  1. SORAFENIB [Suspect]
     Indication: PROSTATE CANCER METASTATIC
     Dosage: TOTAL DAILY DOSE: 800 MG  UNIT DOSE: 200 MG
     Route: 048
     Dates: start: 20070604, end: 20070730
  2. MITOXANTRONE [Suspect]
     Indication: PROSTATE CANCER METASTATIC
     Dosage: UNIT DOSE: 12 MG/M2
     Route: 040
     Dates: start: 20070604, end: 20070716
  3. PREDNISONE TAB [Concomitant]
     Dosage: TOTAL DAILY DOSE: 10 MG
     Route: 048
  4. ZOLOFT [Concomitant]
  5. COUMADIN [Concomitant]
  6. COUMADIN [Concomitant]
  7. SYNTHROID [Concomitant]
     Dosage: TOTAL DAILY DOSE: 50 ?G
  8. LASIX [Concomitant]
  9. MAGIC MOUTHWASH [Concomitant]
  10. TYLENOL (CAPLET) [Concomitant]
  11. VALIUM [Concomitant]
     Route: 048
  12. LUPRON [Concomitant]
     Dates: end: 20070521
  13. ZOCOR [Concomitant]
     Dosage: TOTAL DAILY DOSE: 40 MG
     Route: 048
  14. PLAVIX [Concomitant]
     Dosage: TOTAL DAILY DOSE: 75 MG
  15. NITROGLYCERIN [Concomitant]
     Route: 061

REACTIONS (4)
  - DYSPNOEA [None]
  - MUCOSAL INFLAMMATION [None]
  - NEUTROPENIA [None]
  - OESOPHAGITIS [None]
